FAERS Safety Report 19138704 (Version 1)
Quarter: 2021Q2

REPORT INFORMATION
  Report Type: Other
  Country: CA (occurrence: CA)
  Receive Date: 20210415
  Receipt Date: 20210415
  Transmission Date: 20210717
  Serious: Yes (Other)
  Sender: FDA-Public Use
  Company Number: CA-APOTEX-2021AP008590

PATIENT
  Sex: Male

DRUGS (28)
  1. CYCLOSPORINE. [Interacting]
     Active Substance: CYCLOSPORINE
     Indication: IMMUNOSUPPRESSANT DRUG THERAPY
     Dosage: 20 MILLIGRAM
     Route: 065
  2. LAMIVUDINE. [Interacting]
     Active Substance: LAMIVUDINE
     Indication: HIV INFECTION
     Dosage: 400 MILLIGRAM
     Route: 065
  3. RALTEGRAVIR. [Suspect]
     Active Substance: RALTEGRAVIR
     Indication: HIV INFECTION
     Dosage: 400 MILLIGRAM, BID
     Route: 065
  4. TRIZIVIR [Suspect]
     Active Substance: ABACAVIR SULFATE\LAMIVUDINE\ZIDOVUDINE
     Indication: HIV INFECTION
     Dosage: 1 DOSAGE FORM, BID
     Route: 048
  5. DARUNAVIR [Interacting]
     Active Substance: DARUNAVIR
     Indication: HIV INFECTION
     Dosage: 600 MILLIGRAM, BID
     Route: 065
  6. CYCLOSPORINE. [Interacting]
     Active Substance: CYCLOSPORINE
     Dosage: 3 MILLIGRAM
     Route: 065
  7. CYCLOSPORINE. [Interacting]
     Active Substance: CYCLOSPORINE
     Dosage: UNK
     Route: 065
  8. FOSAMPRENAVIR [Suspect]
     Active Substance: FOSAMPRENAVIR
     Indication: HIV INFECTION
     Dosage: 700 MILLIGRAM, BID
     Route: 065
  9. TRUVADA [Suspect]
     Active Substance: EMTRICITABINE\TENOFOVIR DISOPROXIL FUMARATE
     Indication: HIV INFECTION
     Dosage: UNK
     Route: 065
  10. MYCOPHENOLATE MOFETIL. [Suspect]
     Active Substance: MYCOPHENOLATE MOFETIL
     Indication: IMMUNOSUPPRESSANT DRUG THERAPY
     Dosage: UNK
     Route: 065
  11. TACROLIMUS. [Interacting]
     Active Substance: TACROLIMUS
     Dosage: 0.2 UNK
     Route: 065
  12. TACROLIMUS. [Interacting]
     Active Substance: TACROLIMUS
     Dosage: 0.1 UNK
     Route: 065
  13. ATAZANAVIR. [Interacting]
     Active Substance: ATAZANAVIR
     Indication: HIV INFECTION
     Dosage: 400 MILLIGRAM
     Route: 048
  14. LAMIVUDINE. [Interacting]
     Active Substance: LAMIVUDINE
     Dosage: 300 MILLIGRAM
     Route: 048
  15. RITONAVIR. [Suspect]
     Active Substance: RITONAVIR
     Dosage: 100 MILLIGRAM, BID
     Route: 065
  16. TACROLIMUS. [Interacting]
     Active Substance: TACROLIMUS
     Indication: IMMUNOSUPPRESSANT DRUG THERAPY
     Dosage: 0.5 MILLIGRAM, BID
     Route: 065
  17. CYCLOSPORINE. [Interacting]
     Active Substance: CYCLOSPORINE
     Dosage: 25 MILLIGRAM, BID
     Route: 065
  18. CYCLOSPORINE. [Interacting]
     Active Substance: CYCLOSPORINE
     Dosage: 10 MILLIGRAM, BID
     Route: 065
  19. RITONAVIR. [Suspect]
     Active Substance: RITONAVIR
     Indication: HIV INFECTION
     Dosage: 100 UNK
     Route: 065
  20. TACROLIMUS. [Interacting]
     Active Substance: TACROLIMUS
     Dosage: 0.25 MILLIGRAM, QD
     Route: 065
  21. ABACAVIR. [Suspect]
     Active Substance: ABACAVIR
     Indication: HIV INFECTION
     Dosage: 600 MILLIGRAM
     Route: 065
  22. ZIDOVUDINE. [Interacting]
     Active Substance: ZIDOVUDINE
     Indication: HIV INFECTION
     Dosage: UNK
     Route: 065
  23. COBICISTAT;ELVITEGRAVIR;EMTRICITABINE;TENOFOVIR ALAFENAMIDE FUMARATE [Suspect]
     Active Substance: COBICISTAT\ELVITEGRAVIR\EMTRICITABINE\TENOFOVIR ALAFENAMIDE FUMARATE
     Indication: HIV INFECTION
     Dosage: 1 DOSAGE FORM
     Route: 065
  24. ETRAVIRINE [Suspect]
     Active Substance: ETRAVIRINE
     Indication: HIV INFECTION
     Dosage: 200 MILLIGRAM, BID
     Route: 065
  25. LAMIVUDINE. [Interacting]
     Active Substance: LAMIVUDINE
     Dosage: UNK
     Route: 065
  26. PREDNISONE. [Interacting]
     Active Substance: PREDNISONE
     Indication: IMMUNOSUPPRESSANT DRUG THERAPY
     Route: 065
  27. TACROLIMUS. [Interacting]
     Active Substance: TACROLIMUS
     Dosage: 0.07 MILLIGRAM
     Route: 065
  28. STAVUDINE. [Suspect]
     Active Substance: STAVUDINE
     Indication: HIV INFECTION
     Dosage: 40 MILLIGRAM
     Route: 048

REACTIONS (3)
  - Heart transplant rejection [Unknown]
  - Drug level increased [Unknown]
  - Drug interaction [Unknown]
